FAERS Safety Report 6899960-9 (Version None)
Quarter: 2010Q3

REPORT INFORMATION
  Report Type: 
  Country: None (occurrence: None)
  Receive Date: 20100803
  Receipt Date: 20100723
  Transmission Date: 20110219
  Serious: Yes (Life-Threatening, Hospitalization, Other)
  Sender: FDA-Public Use
  Company Number: DK-NOVOPROD-311647

PATIENT
  Age: 57 Year
  Sex: Male
  Weight: 105.3 kg

DRUGS (2)
  1. NOVOMIX 30 FLEXPEN [Suspect]
     Indication: DIABETES MELLITUS
     Dosage: 58 IU, QD
     Route: 058
     Dates: start: 20100517
  2. NOVOMIX 30 FLEXPEN [Suspect]
     Dosage: UNK

REACTIONS (3)
  - HYPOGLYCAEMIA [None]
  - OVERDOSE [None]
  - SUICIDE ATTEMPT [None]
